FAERS Safety Report 4316691-X (Version None)
Quarter: 2004Q1

REPORT INFORMATION
  Report Type: 
  Country: None (occurrence: None)
  Receive Date: 20040311
  Receipt Date: 20040302
  Transmission Date: 20041129
  Serious: Yes (Other)
  Sender: FDA-Public Use
  Company Number: 2004201763IN

PATIENT
  Age: 21 Year
  Sex: Male

DRUGS (7)
  1. FLAGYL [Suspect]
     Indication: DRUG USE FOR UNKNOWN INDICATION
     Dosage: 400 MG, TID; ORAL
     Route: 048
  2. DIASTASE [Concomitant]
  3. PAPAIN [Concomitant]
  4. SIMETHICONE (DIMETICONE, ACTIVATED) [Concomitant]
  5. CHARCOAL, ACTIVATED (CHARCOAL, ACTIVATED) [Concomitant]
  6. NICOTINAMIDE [Concomitant]
  7. HERBAL ONT [Concomitant]

REACTIONS (2)
  - DERMATITIS BULLOUS [None]
  - DRUG ERUPTION [None]
